FAERS Safety Report 4909128-0 (Version None)
Quarter: 2006Q1

REPORT INFORMATION
  Report Type: 
  Country: None (occurrence: None)
  Receive Date: 20060208
  Receipt Date: 20060130
  Transmission Date: 20060701
  Serious: Yes (Hospitalization)
  Sender: FDA-Public Use
  Company Number: SUS1-2005-00795

PATIENT
  Age: 40 Year
  Sex: Male
  Weight: 72.6 kg

DRUGS (6)
  1. ADDERALL 10 [Suspect]
     Indication: ATTENTION DEFICIT/HYPERACTIVITY DISORDER
     Dates: start: 20050601, end: 20051108
  2. ADDERALL 10 [Suspect]
     Indication: ATTENTION DEFICIT/HYPERACTIVITY DISORDER
     Dates: start: 20050101
  3. ADDERALL XR 15 [Suspect]
     Dates: end: 20050601
  4. KLONOPIN [Concomitant]
  5. GEODON [Concomitant]
  6. SEROQUEL [Concomitant]

REACTIONS (8)
  - ABNORMAL BEHAVIOUR [None]
  - AGGRESSION [None]
  - AGITATION [None]
  - DRUG PRESCRIBING ERROR [None]
  - HOSTILITY [None]
  - INAPPROPRIATE AFFECT [None]
  - MANIA [None]
  - PSYCHOTIC DISORDER [None]
